FAERS Safety Report 9609620 (Version 1)
Quarter: 2013Q4

REPORT INFORMATION
  Report Type: Spontaneous
  Country: US (occurrence: US)
  Receive Date: 20131009
  Receipt Date: 20131009
  Transmission Date: 20140711
  Serious: Yes (Other)
  Sender: FDA-Public Use
  Company Number: US-PFIZER INC-2013285246

PATIENT
  Age: 40 Year
  Sex: Male
  Weight: 122 kg

DRUGS (10)
  1. ACCUPRIL [Suspect]
     Indication: HYPERTENSION
     Dosage: UNK
  2. CHANTIX [Suspect]
     Indication: SMOKING CESSATION THERAPY
     Dosage: UNK
  3. TRICOR [Concomitant]
     Indication: BLOOD CHOLESTEROL INCREASED
     Dosage: UNK
  4. TRICOR [Concomitant]
     Indication: BLOOD TRIGLYCERIDES INCREASED
  5. ZETIA [Concomitant]
     Dosage: UNK
  6. COREG [Concomitant]
     Indication: CARDIAC DISORDER
     Dosage: UNK
  7. POTASSIUM [Concomitant]
     Dosage: UNK
  8. SYNTHROID [Concomitant]
     Dosage: UNK
  9. LEVEMIR [Concomitant]
     Indication: DIABETES MELLITUS
     Dosage: UNK
  10. FUROSEMIDE [Concomitant]
     Dosage: UNK

REACTIONS (3)
  - Coronary artery disease [Unknown]
  - Neuropathy peripheral [Unknown]
  - Pain in extremity [Unknown]
